FAERS Safety Report 18142347 (Version 1)
Quarter: 2020Q3

REPORT INFORMATION
  Report Type: Spontaneous
  Country: US (occurrence: US)
  Receive Date: 20200812
  Receipt Date: 20200812
  Transmission Date: 20201103
  Serious: Yes (Death, Other)
  Sender: FDA-Public Use
  Company Number: US-GILEAD-2020-0489770

PATIENT
  Age: 59 Year
  Sex: Male

DRUGS (7)
  1. EPOPROSTENOL. [Concomitant]
     Active Substance: EPOPROSTENOL
     Dosage: UNK
     Route: 055
     Dates: start: 20200718, end: 20200727
  2. DEXAMETHASONE. [Concomitant]
     Active Substance: DEXAMETHASONE
     Dosage: UNK
     Dates: start: 20200713, end: 20200725
  3. MIDAZOLAM. [Concomitant]
     Active Substance: MIDAZOLAM
     Dosage: INFUSION
     Route: 042
     Dates: start: 20200717, end: 20200727
  4. CISATRACURIUM. [Concomitant]
     Active Substance: CISATRACURIUM
     Dosage: INFUSION
     Route: 042
     Dates: start: 20200716, end: 20200727
  5. FENTANYL. [Concomitant]
     Active Substance: FENTANYL
     Dosage: UNK
     Route: 042
     Dates: start: 20000217, end: 20200727
  6. REMDESIVIR. [Suspect]
     Active Substance: REMDESIVIR
     Indication: COVID-19
     Dosage: UNK
     Route: 042
     Dates: start: 20200713, end: 20200716
  7. NOREPINEPHRINE. [Concomitant]
     Active Substance: NOREPINEPHRINE
     Dosage: INFUSION
     Route: 042
     Dates: start: 20200717, end: 20200727

REACTIONS (8)
  - Shock [Unknown]
  - Transaminases increased [Unknown]
  - Klebsiella bacteraemia [Unknown]
  - Hypotension [Unknown]
  - Death [Fatal]
  - Acinetobacter bacteraemia [Unknown]
  - Bacteraemia [Unknown]
  - Pulmonary embolism [Unknown]

NARRATIVE: CASE EVENT DATE: 20200717
